FAERS Safety Report 8141177-4 (Version None)
Quarter: 2012Q1

REPORT INFORMATION
  Report Type: 
  Country: None (occurrence: None)
  Receive Date: 20120103
  Receipt Date: 20111006
  Transmission Date: 20120608
  Serious: No
  Sender: FDA-Public Use
  Company Number: AE-2011-001675

PATIENT
  Age: 43 Year
  Sex: Male
  Weight: 72.5755 kg

DRUGS (4)
  1. COPEGUS [Concomitant]
  2. RANITIDINE HYDROCHLORIDE [Concomitant]
  3. INCIVEK [Suspect]
     Dosage: 2250 MG (750 MG, 1 IN 8 HR) , ORAL
     Route: 048
     Dates: start: 20110919
  4. PEGASYS [Concomitant]

REACTIONS (1)
  - INCORRECT DOSE ADMINISTERED [None]
